FAERS Safety Report 9486564 (Version 2)
Quarter: 2013Q3

REPORT INFORMATION
  Report Type: Spontaneous
  Country: JP (occurrence: JP)
  Receive Date: 20130829
  Receipt Date: 20130917
  Transmission Date: 20140515
  Serious: Yes (Hospitalization)
  Sender: FDA-Public Use
  Company Number: PHHY2013JP093938

PATIENT
  Age: 71 Year
  Sex: Female

DRUGS (3)
  1. TEGRETOL [Suspect]
     Indication: TRIGEMINAL NEURALGIA
     Dosage: 2 DF PER DAY (200 MG DAILY)
     Route: 048
     Dates: start: 20130823
  2. MICARDIS [Concomitant]
     Dosage: 40 MG, UNK
     Route: 048
  3. METGLUCO [Concomitant]
     Dosage: 2250 MG, UNK
     Route: 048

REACTIONS (4)
  - Body temperature decreased [Recovering/Resolving]
  - Neck pain [Recovering/Resolving]
  - Tremor [Recovering/Resolving]
  - Vomiting [Recovering/Resolving]
